FAERS Safety Report 7552032-2 (Version None)
Quarter: 2011Q2

REPORT INFORMATION
  Report Type: 
  Country: None (occurrence: None)
  Receive Date: 20110616
  Receipt Date: 20110607
  Transmission Date: 20111010
  Serious: Yes (Other)
  Sender: FDA-Public Use
  Company Number: US-US-EMD SERONO, INC.-7064283

PATIENT
  Sex: Female

DRUGS (6)
  1. REBIF [Suspect]
     Indication: MULTIPLE SCLEROSIS
     Route: 058
     Dates: start: 20090326
  2. LORAZEPAM [Concomitant]
  3. ANTIDEPRESSANTS [Concomitant]
  4. SOMA [Concomitant]
  5. NEURONTIN [Concomitant]
     Indication: EPILEPSY
  6. DEPAKOTE [Concomitant]
     Indication: EPILEPSY

REACTIONS (11)
  - EPILEPSY [None]
  - HEAD INJURY [None]
  - EYE PAIN [None]
  - PHARYNGITIS STREPTOCOCCAL [None]
  - FEELING JITTERY [None]
  - PAIN [None]
  - DELUSION [None]
  - MEMORY IMPAIRMENT [None]
  - ERYTHEMA [None]
  - CONTUSION [None]
  - MIGRAINE [None]
